FAERS Safety Report 18628642 (Version 1)
Quarter: 2020Q4

REPORT INFORMATION
  Report Type: Spontaneous
  Country: US (occurrence: US)
  Receive Date: 20201217
  Receipt Date: 20201217
  Transmission Date: 20210114
  Serious: Yes (Hospitalization)
  Sender: FDA-Public Use
  Company Number: US-TEVA-2020-US-1860554

PATIENT
  Sex: Female

DRUGS (6)
  1. METRONIDAZOLE TEVA [Suspect]
     Active Substance: METRONIDAZOLE
     Indication: FAECES DISCOLOURED
     Dosage: 1000 MILLIGRAM DAILY;
     Route: 065
     Dates: end: 20201110
  2. VANCOMYCIN LUPIN [Suspect]
     Active Substance: VANCOMYCIN
     Indication: ABDOMINAL PAIN UPPER
  3. VANCOMYCIN LUPIN [Suspect]
     Active Substance: VANCOMYCIN
     Indication: DIARRHOEA
  4. METRONIDAZOLE TEVA [Suspect]
     Active Substance: METRONIDAZOLE
     Indication: DIARRHOEA
  5. VANCOMYCIN LUPIN [Suspect]
     Active Substance: VANCOMYCIN
     Indication: FAECES DISCOLOURED
     Dosage: 1000 MILLIGRAM DAILY;
     Route: 065
     Dates: end: 20201110
  6. METRONIDAZOLE TEVA [Suspect]
     Active Substance: METRONIDAZOLE
     Indication: ABDOMINAL PAIN UPPER

REACTIONS (1)
  - Drug ineffective [Unknown]
